FAERS Safety Report 18067430 (Version 12)
Quarter: 2021Q3

REPORT INFORMATION
  Report Type: Report from Study
  Country: AR (occurrence: AR)
  Receive Date: 20200724
  Receipt Date: 20210917
  Transmission Date: 20211014
  Serious: Yes (Other)
  Sender: FDA-Public Use
  Company Number: NVSC2020AR208378

PATIENT
  Age: 41 Year
  Sex: Male

DRUGS (4)
  1. COSENTYX [Suspect]
     Active Substance: SECUKINUMAB
     Indication: PSORIASIS
     Dosage: 300 MG, QMO
     Route: 058
     Dates: start: 20190115
  2. COSENTYX [Suspect]
     Active Substance: SECUKINUMAB
     Dosage: 300 MG, QMO
     Route: 058
     Dates: start: 20200528
  3. COSENTYX [Suspect]
     Active Substance: SECUKINUMAB
     Dosage: 1 DF, QMO
     Route: 065
     Dates: end: 20200701
  4. COSENTYX [Suspect]
     Active Substance: SECUKINUMAB
     Dosage: 300 MG, QMO
     Route: 058
     Dates: start: 20210608

REACTIONS (18)
  - Arthralgia [Unknown]
  - Gait inability [Unknown]
  - Gait disturbance [Unknown]
  - General physical health deterioration [Unknown]
  - Scab [Unknown]
  - Fracture delayed union [Not Recovered/Not Resolved]
  - Skin burning sensation [Unknown]
  - Pain [Unknown]
  - Joint injury [Unknown]
  - Lower limb fracture [Unknown]
  - Malaise [Unknown]
  - Psoriasis [Unknown]
  - Intentional underdose [Unknown]
  - Road traffic accident [Unknown]
  - Condition aggravated [Unknown]
  - Fall [Not Recovered/Not Resolved]
  - Peripheral swelling [Unknown]
  - Erythema [Unknown]

NARRATIVE: CASE EVENT DATE: 20200301
